FAERS Safety Report 6833045-2 (Version None)
Quarter: 2010Q3

REPORT INFORMATION
  Report Type: 
  Country: None (occurrence: None)
  Receive Date: 20100712
  Receipt Date: 20070319
  Transmission Date: 20110219
  Serious: No
  Sender: FDA-Public Use
  Company Number: US-PFIZER INC-2007024300

PATIENT
  Sex: Female
  Weight: 70.31 kg

DRUGS (11)
  1. CHANTIX [Suspect]
     Indication: SMOKING CESSATION THERAPY
     Dates: start: 20070301
  2. COGENTIN [Concomitant]
     Indication: ADVERSE DRUG REACTION
  3. DILANTIN [Concomitant]
     Indication: CONVULSION
  4. TOPAMAX [Concomitant]
     Indication: CONVULSION
  5. ANTITHROMBOTIC AGENTS [Concomitant]
  6. ALL OTHER THERAPEUTIC PRODUCTS [Concomitant]
  7. ANTI-ASTHMATICS [Concomitant]
  8. ALL OTHER THERAPEUTIC PRODUCTS [Concomitant]
  9. ALL OTHER THERAPEUTIC PRODUCTS [Concomitant]
  10. ALL OTHER THERAPEUTIC PRODUCTS [Concomitant]
  11. METOCLOPRAMIDE [Concomitant]

REACTIONS (3)
  - HYPERSENSITIVITY [None]
  - NAUSEA [None]
  - VULVOVAGINAL PAIN [None]
